FAERS Safety Report 13602072 (Version 2)
Quarter: 2017Q3

REPORT INFORMATION
  Report Type: Spontaneous
  Country: US (occurrence: US)
  Receive Date: 20170601
  Receipt Date: 20170724
  Transmission Date: 20171127
  Serious: Yes (Hospitalization)
  Sender: FDA-Public Use
  Company Number: US-LANNETT COMPANY, INC.-US-2017LAN000804

PATIENT
  Age: 27 Year
  Sex: Female

DRUGS (17)
  1. EPINEPHRINE. [Suspect]
     Active Substance: EPINEPHRINE
     Indication: NASAL SEPTAL OPERATION
     Dosage: 0.5 ML, SINGLE
     Route: 045
  2. BSS [Suspect]
     Active Substance: CALCIUM CHLORIDE\MAGNESIUM CHLORIDE\POTASSIUM CHLORIDE\SODIUM ACETATE\SODIUM CHLORIDE\SODIUM CITRATE
     Indication: NASAL SEPTAL OPERATION
     Dosage: 5 ML, LEFT AND RIGHT
     Route: 065
  3. CEFAZOLIN [Concomitant]
     Active Substance: CEFAZOLIN
     Indication: NASAL SEPTAL OPERATION
     Dosage: 1 G, UNK
     Route: 065
  4. LIDOCAINE. [Concomitant]
     Active Substance: LIDOCAINE
     Indication: NASAL SEPTAL OPERATION
     Dosage: 100MG/5ML
     Route: 065
  5. REMIFENTANIL [Concomitant]
     Active Substance: REMIFENTANIL
     Indication: NASAL SEPTAL OPERATION
     Dosage: 1 MG, UNK
     Route: 065
  6. ZOFRAN [Concomitant]
     Active Substance: ONDANSETRON HYDROCHLORIDE
     Indication: NASAL SEPTAL OPERATION
     Dosage: 4 MG, UNK
     Route: 065
  7. COCAINE [Suspect]
     Active Substance: COCAINE
     Indication: NASAL SEPTAL OPERATION
     Dosage: 1 ML, SINGLE
     Route: 045
     Dates: start: 20170517
  8. GELFOAM [Suspect]
     Active Substance: GELATIN\THROMBIN HUMAN
     Indication: NASAL SEPTAL OPERATION
     Dosage: 12X7, ALL, DRESSING
  9. LACTATED RINGERS [Concomitant]
     Active Substance: CALCIUM CHLORIDE\POTASSIUM CHLORIDE\SODIUM CHLORIDE\SODIUM LACTATE
     Indication: PREOPERATIVE CARE
     Dosage: 1000 ML, UNK
     Route: 042
  10. DECADRON [Concomitant]
     Active Substance: DEXAMETHASONE
     Indication: NASAL SEPTAL OPERATION
     Dosage: 8 MG, UNK
     Route: 065
  11. XYLOCAINE [Suspect]
     Active Substance: LIDOCAINE HYDROCHLORIDE
     Indication: NASAL SEPTAL OPERATION
     Dosage: 4 ML, SINGLE
     Route: 045
  12. MIDAZOLAM [Concomitant]
     Active Substance: MIDAZOLAM HYDROCHLORIDE
     Indication: NASAL SEPTAL OPERATION
     Dosage: 5 MG, UNK
     Route: 065
  13. FENTANYL. [Concomitant]
     Active Substance: FENTANYL
     Indication: NASAL SEPTAL OPERATION
     Dosage: 50 MCG, UNK
     Route: 065
  14. PROPOFOL. [Concomitant]
     Active Substance: PROPOFOL
     Indication: NASAL SEPTAL OPERATION
     Dosage: UNK
     Route: 065
  15. BACTROBAN [Suspect]
     Active Substance: MUPIROCIN\MUPIROCIN CALCIUM
     Indication: NASAL SEPTAL OPERATION
     Dosage: 5 ML, DRESSING
  16. PROVERA [Concomitant]
     Active Substance: MEDROXYPROGESTERONE ACETATE
     Indication: PRODUCT USED FOR UNKNOWN INDICATION
     Dosage: 10 MG, 10 DAYS PER MONTH
  17. TORADOL [Concomitant]
     Active Substance: KETOROLAC TROMETHAMINE
     Indication: NASAL SEPTAL OPERATION
     Dosage: 45 MG, UNK
     Route: 065

REACTIONS (1)
  - Seizure [Unknown]

NARRATIVE: CASE EVENT DATE: 20170517
